FAERS Safety Report 6602748-7 (Version None)
Quarter: 2010Q1

REPORT INFORMATION
  Report Type: 
  Country: None (occurrence: None)
  Receive Date: 20100225
  Receipt Date: 20090112
  Transmission Date: 20100710
  Serious: No
  Sender: FDA-Public Use
  Company Number: US-BAUSCH-2009BL000117

PATIENT
  Age: 47 Year
  Sex: Female

DRUGS (3)
  1. FLURBIPROFEN SODIUM [Suspect]
     Route: 047
     Dates: start: 20090110, end: 20090110
  2. VICODIN [Concomitant]
     Indication: PAIN
  3. XANAX /USA/ [Concomitant]

REACTIONS (6)
  - CORNEAL ABRASION [None]
  - EYE IRRITATION [None]
  - MEDICATION ERROR [None]
  - MYDRIASIS [None]
  - OCULAR HYPERAEMIA [None]
  - VISION BLURRED [None]
